FAERS Safety Report 7110774-7 (Version None)
Quarter: 2010Q4

REPORT INFORMATION
  Report Type: 
  Country: None (occurrence: None)
  Receive Date: 20101118
  Receipt Date: 20101109
  Transmission Date: 20110411
  Serious: Yes (Hospitalization)
  Sender: FDA-Public Use
  Company Number: B0685057A

PATIENT
  Sex: Male
  Weight: 75 kg

DRUGS (5)
  1. AVODART [Suspect]
     Dosage: .5MG PER DAY
     Route: 048
     Dates: start: 20090401, end: 20091001
  2. ACETYLSALICYLZUUR CARDIO [Concomitant]
     Dosage: 80MG PER DAY
     Route: 065
  3. FLECAINIDE ACETATE [Concomitant]
     Dosage: 100MG PER DAY
     Route: 065
  4. LOSARTAN [Concomitant]
     Route: 065
     Dates: start: 20051201
  5. LIPITOR [Concomitant]
     Dosage: 20MG PER DAY
     Route: 065
     Dates: start: 20051201

REACTIONS (1)
  - BREAST NEOPLASM [None]
